FAERS Safety Report 20672804 (Version 1)
Quarter: 2022Q2

REPORT INFORMATION
  Report Type: Spontaneous
  Country: CA (occurrence: CA)
  Receive Date: 20220405
  Receipt Date: 20220405
  Transmission Date: 20220720
  Serious: Yes (Hospitalization)
  Sender: FDA-Public Use
  Company Number: None

PATIENT
  Sex: Female

DRUGS (12)
  1. METHOTREXATE [Suspect]
     Active Substance: METHOTREXATE
     Indication: Product used for unknown indication
     Route: 037
  2. VINCRISTINE SULFATE [Suspect]
     Active Substance: VINCRISTINE SULFATE
     Indication: Product used for unknown indication
  3. BACTRIM [Concomitant]
     Active Substance: SULFAMETHOXAZOLE\TRIMETHOPRIM
  4. CHLORHEXIDINE [Concomitant]
     Active Substance: CHLORHEXIDINE
     Dosage: MOUTHWASH
  5. CICLESONIDE [Concomitant]
     Active Substance: CICLESONIDE
  6. DEXAMETHASONE [Concomitant]
     Active Substance: DEXAMETHASONE
  7. FLUTICASONE [Concomitant]
     Active Substance: FLUTICASONE
  8. MERCAPTOPURINE [Concomitant]
     Active Substance: MERCAPTOPURINE
  9. ONDANSETRON [Concomitant]
     Active Substance: ONDANSETRON
  10. POLYETHYLENE GLYCOLS [Concomitant]
     Active Substance: POLYETHYLENE GLYCOLS
     Dosage: POWDER FOR SOLUTION ORAL
  11. ALBUTEROL [Concomitant]
     Active Substance: ALBUTEROL
     Dosage: INHALATION
  12. VITAMINS NOS [Concomitant]
     Active Substance: VITAMINS

REACTIONS (1)
  - Febrile neutropenia [Recovering/Resolving]
